FAERS Safety Report 6066255-5 (Version None)
Quarter: 2009Q1

REPORT INFORMATION
  Report Type: 
  Country: None (occurrence: None)
  Receive Date: 20090202
  Receipt Date: 20090127
  Transmission Date: 20090719
  Serious: Yes (Death, Hospitalization)
  Sender: FDA-Public Use
  Company Number: CLOF-1000413

PATIENT
  Age: 54 Year
  Sex: Male

DRUGS (10)
  1. CLOLAR [Suspect]
     Indication: NON-HODGKIN'S LYMPHOMA
     Dates: start: 20081201, end: 20081218
  2. ACYCLOVIR [Concomitant]
  3. ALLOPURINOL [Concomitant]
  4. FLUCONAZOLE [Concomitant]
  5. LORAZEPAM [Concomitant]
  6. NYSTATIN [Concomitant]
  7. OXYCODONE HCL [Concomitant]
  8. OXYCONTIN [Concomitant]
  9. SULFAMETHOXAZOLE W (SULFAMETHOXAZOLE, TRIMETHOPRIM) [Concomitant]
  10. TRIAMCINOLONE ACETONIDE [Concomitant]

REACTIONS (11)
  - DEHYDRATION [None]
  - DISEASE PROGRESSION [None]
  - EXCORIATION [None]
  - FLUID INTAKE REDUCED [None]
  - HYPONATRAEMIA [None]
  - HYPOPHAGIA [None]
  - INSOMNIA [None]
  - ORAL PAIN [None]
  - OROPHARYNGEAL PAIN [None]
  - SCAB [None]
  - SKIN EXFOLIATION [None]
